FAERS Safety Report 8844390 (Version 1)
Quarter: 2012Q4

REPORT INFORMATION
  Report Type: 
  Country: DE (occurrence: DE)
  Receive Date: 20121017
  Receipt Date: 20121017
  Transmission Date: 20130627
  Serious: Yes (Other)
  Sender: FDA-Public Use
  Company Number: PHHY2012DE090913

PATIENT
  Age: 36 Year
  Sex: Female
  Weight: 88 kg

DRUGS (5)
  1. CO-DIOVAN [Suspect]
     Indication: HYPERTENSION
     Dosage: UNK UKN, UNK
     Route: 048
     Dates: start: 20090924, end: 20100314
  2. PANDEMRIX [Concomitant]
     Indication: IMMUNISATION
     Dosage: UNK UKN, UNK
     Route: 030
     Dates: start: 20091105, end: 20091105
  3. VITAVERLAN [Concomitant]
     Indication: VITAMIN SUPPLEMENTATION
     Dosage: 0.4 mg, per day
     Route: 048
  4. THYROXIN [Concomitant]
     Indication: HYPOTHYROIDISM
     Dosage: 50 ug, per day
     Route: 048
     Dates: start: 20090924, end: 20100609
  5. METHYLDOPA [Concomitant]
     Indication: HYPERTENSION
     Dosage: 250 mg, per day
     Route: 048
     Dates: start: 20100314, end: 20100609

REACTIONS (3)
  - Premature labour [Unknown]
  - Oligohydramnios [Recovered/Resolved]
  - Exposure during pregnancy [Unknown]
